FAERS Safety Report 19682285 (Version 1)
Quarter: 2021Q3

REPORT INFORMATION
  Report Type: Spontaneous
  Country: CN (occurrence: CN)
  Receive Date: 20210811
  Receipt Date: 20210811
  Transmission Date: 20211014
  Serious: Yes (Other)
  Sender: FDA-Public Use
  Company Number: CN-ROCHE-2885204

PATIENT
  Age: 82 Year
  Sex: Male

DRUGS (8)
  1. ATEZOLIZUMAB. [Suspect]
     Active Substance: ATEZOLIZUMAB
     Indication: SMALL CELL LUNG CANCER METASTATIC
     Dosage: RECEIVED SUBSEQUENT DOSES ON 26 AUG 2020, 17 SEP 2020, 12 OCT 2020 AND 04 NOV 2020
     Route: 041
     Dates: start: 20200802
  2. ETOPOSIDE. [Concomitant]
     Active Substance: ETOPOSIDE
     Dosage: RECEIVED SUBSEQUENT DOSES ON 26 FEB 2021, 23 MAR 2021, 21 APR 2021, 26 JUN 2021
     Route: 041
     Dates: start: 20210226
  3. ETOPOSIDE. [Concomitant]
     Active Substance: ETOPOSIDE
     Route: 041
     Dates: start: 2021
  4. ATEZOLIZUMAB. [Suspect]
     Active Substance: ATEZOLIZUMAB
     Route: 041
     Dates: start: 2021
  5. ETOPOSIDE. [Concomitant]
     Active Substance: ETOPOSIDE
     Indication: SMALL CELL LUNG CANCER METASTATIC
     Dosage: RECEIVED SUBSEQUENT DOSES ON 26 AUG 2020, 17 SEP 2020, 12 OCT 2020, 04 NOV 2020
     Route: 041
     Dates: start: 20200802
  6. CISPLATIN. [Concomitant]
     Active Substance: CISPLATIN
     Indication: SMALL CELL LUNG CANCER METASTATIC
     Dosage: RECEIVED SUBSEQUENT DOSES ON 26 AUG 2020, 17 SEP 2020, 12 OCT 2020, AND 04 NOV 2020
     Route: 041
     Dates: start: 20200802
  7. CISPLATIN. [Concomitant]
     Active Substance: CISPLATIN
     Dosage: RECEIVED SUBSEQUENT DOSES ON 23 MAR 2021, 21 APR 2021, AND 26 JUN 2021
     Route: 041
     Dates: start: 2021
  8. CISPLATIN. [Concomitant]
     Active Substance: CISPLATIN
     Dosage: RECEIVED SUBSEQUENT DOSES ON 23 MAR 2021, 21 APR 2021, AND 26 JUN 2021
     Route: 041
     Dates: start: 20210226

REACTIONS (1)
  - Myelosuppression [Unknown]
